FAERS Safety Report 5009692-X (Version None)
Quarter: 2006Q2

REPORT INFORMATION
  Report Type: 
  Country: None (occurrence: None)
  Receive Date: 20060524
  Receipt Date: 20060321
  Transmission Date: 20061013
  Serious: Yes (Hospitalization)
  Sender: FDA-Public Use
  Company Number: US-MERCK-0603USA03349

PATIENT
  Age: 58 Year
  Sex: Female

DRUGS (2)
  1. EMEND [Suspect]
     Indication: PROPHYLAXIS OF NAUSEA AND VOMITING
     Route: 048
     Dates: start: 20060301, end: 20060301
  2. CYTARABINE [Concomitant]
     Route: 065

REACTIONS (3)
  - CONFUSIONAL STATE [None]
  - NERVOUS SYSTEM DISORDER [None]
  - NEUROTOXICITY [None]
